FAERS Safety Report 13405364 (Version 1)
Quarter: 2017Q2

REPORT INFORMATION
  Report Type: Report from Study
  Country: ES (occurrence: ES)
  Receive Date: 20170405
  Receipt Date: 20170405
  Transmission Date: 20170830
  Serious: Yes (Life-Threatening, Hospitalization)
  Sender: FDA-Public Use
  Company Number: ES-PFIZER INC-2017142987

PATIENT
  Age: 43 Year
  Sex: Female

DRUGS (5)
  1. TOPIRAMATE. [Interacting]
     Active Substance: TOPIRAMATE
     Indication: MIGRAINE
     Dosage: 200 MG, 1X/DAY
     Route: 048
     Dates: start: 201512
  2. YURELAX [Concomitant]
     Active Substance: CYCLOBENZAPRINE HYDROCHLORIDE
     Indication: FIBROMYALGIA
     Dosage: 10 MG, 1X/DAY
     Route: 048
     Dates: start: 20150608
  3. LYRICA [Suspect]
     Active Substance: PREGABALIN
     Indication: FIBROMYALGIA
     Dosage: 14 G, 1X/DAY
     Route: 048
     Dates: start: 20160203, end: 20160203
  4. LORAZEPAM. [Interacting]
     Active Substance: LORAZEPAM
     Dosage: 20 MG, 1X/DAY
     Route: 048
     Dates: start: 20160203, end: 20160203
  5. LORMETAZEPAM [Interacting]
     Active Substance: LORMETAZEPAM
     Dosage: 4 MG, 1X/DAY
     Route: 048
     Dates: start: 20160203, end: 20160203

REACTIONS (3)
  - Drug interaction [Recovered/Resolved]
  - Depressed level of consciousness [Recovered/Resolved]
  - Intentional overdose [Recovered/Resolved]

NARRATIVE: CASE EVENT DATE: 20160203
